FAERS Safety Report 8251023-6 (Version None)
Quarter: 2012Q2

REPORT INFORMATION
  Report Type: 
  Country: None (occurrence: None)
  Receive Date: 20120402
  Receipt Date: 20120328
  Transmission Date: 20120825
  Serious: No
  Sender: FDA-Public Use
  Company Number: US-TEVA-330803USA

PATIENT
  Sex: Female
  Weight: 53.572 kg

DRUGS (2)
  1. AMOXICILLIN [Concomitant]
     Indication: ACNE
  2. PLAN B ONE-STEP [Suspect]
     Indication: POST COITAL CONTRACEPTION
     Dosage: 1.5 MILLIGRAM;
     Route: 048
     Dates: start: 20120326, end: 20120326

REACTIONS (3)
  - DIZZINESS [None]
  - FATIGUE [None]
  - HEADACHE [None]
